FAERS Safety Report 13840513 (Version 2)
Quarter: 2017Q3

REPORT INFORMATION
  Report Type: Spontaneous
  Country: US (occurrence: US)
  Receive Date: 20170807
  Receipt Date: 20170808
  Transmission Date: 20171127
  Serious: No
  Sender: FDA-Public Use
  Company Number: PHEH2017US024615

PATIENT
  Age: 68 Year
  Sex: Female

DRUGS (1)
  1. EVEROLIMUS [Suspect]
     Active Substance: EVEROLIMUS
     Indication: ENDOMETRIAL CANCER RECURRENT
     Dosage: 10 MG, QD
     Route: 048
     Dates: start: 20170309, end: 20170516

REACTIONS (4)
  - Nausea [Recovered/Resolved]
  - Product use in unapproved indication [Unknown]
  - Rash [Recovered/Resolved]
  - Stomatitis [Recovered/Resolved]

NARRATIVE: CASE EVENT DATE: 20170309
